FAERS Safety Report 8495846-7 (Version None)
Quarter: 2012Q2

REPORT INFORMATION
  Report Type: 
  Country: None (occurrence: None)
  Receive Date: 20120402
  Receipt Date: 20100525
  Transmission Date: 20120825
  Serious: Yes (Other)
  Sender: FDA-Public Use
  Company Number: PHHY2010US34099

PATIENT
  Age: 46 Year
  Sex: Male

DRUGS (1)
  1. EXFORGE HCT [Suspect]
     Dosage: 320/10/25MG 160/10/12.5 MG

REACTIONS (3)
  - DIZZINESS [None]
  - MUSCLE SPASMS [None]
  - BLOOD PRESSURE DECREASED [None]
